FAERS Safety Report 19282870 (Version 1)
Quarter: 2021Q2

REPORT INFORMATION
  Report Type: Spontaneous
  Country: DE (occurrence: DE)
  Receive Date: 20210521
  Receipt Date: 20210521
  Transmission Date: 20210717
  Serious: No
  Sender: FDA-Public Use
  Company Number: DE-UCBSA-2021018470

PATIENT
  Sex: Female

DRUGS (1)
  1. LEGANTO [Suspect]
     Active Substance: ROTIGOTINE
     Indication: RESTLESS LEGS SYNDROME
     Dosage: 2 MILLIGRAM, ONCE DAILY (QD)
     Route: 062

REACTIONS (5)
  - Device adhesion issue [Unknown]
  - Restless legs syndrome [Unknown]
  - Therapeutic product effect decreased [Unknown]
  - Application site reaction [Unknown]
  - Application site pain [Unknown]
